FAERS Safety Report 22872434 (Version 2)
Quarter: 2023Q4

REPORT INFORMATION
  Report Type: Spontaneous
  Country: US (occurrence: US)
  Receive Date: 20230828
  Receipt Date: 20231023
  Transmission Date: 20240110
  Serious: No
  Sender: FDA-Public Use
  Company Number: US-PFIZER INC-2021138330

PATIENT
  Age: 94 Year
  Sex: Male
  Weight: 65.306 kg

DRUGS (1)
  1. VYNDAMAX [Suspect]
     Active Substance: TAFAMIDIS
     Indication: Cardiac failure
     Dosage: 61 MG, DAILY
     Dates: start: 2020

REACTIONS (1)
  - Hypoacusis [Unknown]
